FAERS Safety Report 8334263-7 (Version None)
Quarter: 2012Q2

REPORT INFORMATION
  Report Type: 
  Country: None (occurrence: None)
  Receive Date: 20120503
  Receipt Date: 20120430
  Transmission Date: 20120825
  Serious: Yes (Death, Hospitalization)
  Sender: FDA-Public Use
  Company Number: PHHO2012SG004455

PATIENT
  Sex: Male
  Weight: 62 kg

DRUGS (7)
  1. BKM120 [Suspect]
     Indication: NEOPLASM
     Dosage: 50 MG, OM
     Route: 048
     Dates: start: 20120228, end: 20120314
  2. OMEPRAZOLE [Concomitant]
     Indication: PROPHYLAXIS
     Dosage: 20 MG, BID
     Dates: start: 20120213
  3. FENTANYL [Concomitant]
     Indication: BACK PAIN
     Dosage: 15 UG/HR, UNK
     Dates: start: 20120227
  4. MORPHINE SULFATE [Concomitant]
     Indication: BACK PAIN
     Dosage: 30 MG, PRN
     Dates: start: 20120213
  5. MEK162 [Suspect]
     Indication: NEOPLASM
     Dosage: 50 MG, BID
     Route: 048
     Dates: start: 20120228, end: 20120314
  6. DEXAMETHASONE [Suspect]
     Indication: BACK PAIN
     Dosage: 2 MG, BID
     Dates: start: 20120308
  7. PREGABALIN [Concomitant]
     Indication: NEURALGIA
     Dosage: 150 MG, BID
     Dates: start: 20120220

REACTIONS (7)
  - BACK PAIN [None]
  - GASTROINTESTINAL HAEMORRHAGE [None]
  - ANAEMIA [None]
  - DEATH [None]
  - HYPERTHERMIA MALIGNANT [None]
  - PNEUMONIA [None]
  - URINARY TRACT INFECTION [None]
